FAERS Safety Report 6302774-1 (Version None)
Quarter: 2009Q3

REPORT INFORMATION
  Report Type: 
  Country: None (occurrence: None)
  Receive Date: 20090810
  Receipt Date: 20090803
  Transmission Date: 20100115
  Serious: Yes (Other)
  Sender: FDA-Public Use
  Company Number: US-BRISTOL-MYERS SQUIBB COMPANY-14732143

PATIENT

DRUGS (2)
  1. SINEMET [Suspect]
     Route: 065
  2. AZILECT [Suspect]
     Route: 048

REACTIONS (1)
  - RENAL FAILURE [None]
